FAERS Safety Report 25218147 (Version 1)
Quarter: 2025Q2

REPORT INFORMATION
  Report Type: Spontaneous
  Country: US (occurrence: US)
  Receive Date: 20250421
  Receipt Date: 20250421
  Transmission Date: 20250717
  Serious: Yes (Hospitalization)
  Sender: BOEHRINGER INGELHEIM
  Company Number: US-Komodo Health-a23aa000006yTGbAAM

PATIENT
  Age: 60 Year
  Sex: Female

DRUGS (2)
  1. MICARDIS [Suspect]
     Active Substance: TELMISARTAN
     Indication: Blood pressure measurement
     Dates: start: 2006
  2. MICARDIS [Suspect]
     Active Substance: TELMISARTAN
     Indication: Cardiac disorder

REACTIONS (5)
  - Tachycardia [Recovered/Resolved]
  - Dizziness [Unknown]
  - Heart rate increased [Unknown]
  - Rash [Recovered/Resolved]
  - Hypersensitivity [Unknown]

NARRATIVE: CASE EVENT DATE: 20210101
